FAERS Safety Report 24975683 (Version 2)
Quarter: 2025Q2

REPORT INFORMATION
  Report Type: Spontaneous
  Country: DE (occurrence: DE)
  Receive Date: 20250217
  Receipt Date: 20250407
  Transmission Date: 20250716
  Serious: Yes (Hospitalization, Disabling, Other)
  Sender: NOVO NORDISK
  Company Number: DE-DCGMA-25204576

PATIENT
  Age: 50 Year
  Sex: Male
  Weight: 108 kg

DRUGS (10)
  1. SEMAGLUTIDE [Suspect]
     Active Substance: SEMAGLUTIDE
     Indication: Product used for unknown indication
     Dosage: 1 MG, QW
     Route: 058
     Dates: end: 20250109
  2. RIVAROXABAN [Concomitant]
     Active Substance: RIVAROXABAN
     Route: 048
  3. METFORMIN [Concomitant]
     Active Substance: METFORMIN HYDROCHLORIDE
     Route: 048
  4. EZETIMIBE [Concomitant]
     Active Substance: EZETIMIBE
     Route: 048
  5. SPIRONOLACTONE [Concomitant]
     Active Substance: SPIRONOLACTONE
     Route: 048
  6. ALLOPURINOL [Concomitant]
     Active Substance: ALLOPURINOL
     Route: 048
  7. BISOPROLOL [Concomitant]
     Active Substance: BISOPROLOL
     Route: 048
  8. CANDESARTAN [Concomitant]
     Active Substance: CANDESARTAN
     Route: 048
  9. DILTIAZEM [Concomitant]
     Active Substance: DILTIAZEM
     Route: 048
  10. DAPAGLIFLOZIN [Concomitant]
     Active Substance: DAPAGLIFLOZIN
     Route: 048

REACTIONS (3)
  - Optic ischaemic neuropathy [Not Recovered/Not Resolved]
  - Visual acuity reduced [Not Recovered/Not Resolved]
  - Visual field defect [Not Recovered/Not Resolved]

NARRATIVE: CASE EVENT DATE: 20240901
